FAERS Safety Report 22856052 (Version 3)
Quarter: 2024Q2

REPORT INFORMATION
  Report Type: Spontaneous
  Country: NL (occurrence: NL)
  Receive Date: 20230823
  Receipt Date: 20240422
  Transmission Date: 20240716
  Serious: Yes (Death, Life-Threatening, Hospitalization, Other)
  Sender: FDA-Public Use
  Company Number: None

PATIENT
  Age: 55 Year
  Sex: Female
  Weight: 125 kg

DRUGS (4)
  1. ACETAMINOPHEN [Interacting]
     Active Substance: ACETAMINOPHEN
     Indication: Suicide attempt
     Dosage: 20 TABLETS OF ACETAMINOPHEN 500 MG (10 G, OR 80 MG/KG)
     Route: 048
  2. SIMVASTATIN [Interacting]
     Active Substance: SIMVASTATIN
     Indication: Product used for unknown indication
     Dosage: 38 TABLETS OF 40 MG (1520 MG, OR 12 MG/KG)
     Route: 048
  3. METFORMIN [Interacting]
     Active Substance: METFORMIN HYDROCHLORIDE
     Indication: Suicide attempt
     Dosage: 165 TABLETS OF 500 MG
     Route: 048
  4. SEMAGLUTIDE [Interacting]
     Active Substance: SEMAGLUTIDE
     Indication: Suicide attempt
     Dosage: 30 TABLETS OF SEMAGLUTIDE 14 MG (420 MG OR 3.4 MG/ KG)
     Route: 048

REACTIONS (6)
  - Hypoglycaemia [Unknown]
  - Intentional overdose [Fatal]
  - Completed suicide [Fatal]
  - Hepatic necrosis [Fatal]
  - Lactic acidosis [Fatal]
  - Distributive shock [Fatal]
